FAERS Safety Report 5180005-6 (Version None)
Quarter: 2006Q4

REPORT INFORMATION
  Report Type: 
  Country: None (occurrence: None)
  Receive Date: 20061211
  Receipt Date: 20061127
  Transmission Date: 20070319
  Serious: No
  Sender: FDA-Public Use
  Company Number: E2090-00141-SPO-JP

PATIENT
  Age: 1 Month
  Sex: Female

DRUGS (9)
  1. ZONISAMIDE [Suspect]
     Indication: CONVULSION NEONATAL
     Dosage: 20% POWDER, 3 IN 1 D; ORAL
     Route: 048
     Dates: start: 20061109, end: 20061120
  2. ZONISAMIDE [Suspect]
     Indication: CONVULSION NEONATAL
     Dosage: 20% POWDER, 3 IN 1 D; ORAL
     Route: 048
     Dates: start: 20061121
  3. PHENOBARBITAL TAB [Suspect]
     Indication: CONVULSION NEONATAL
     Dosage: 24 MG, UNK; ORAL
     Route: 048
     Dates: start: 20061008
  4. PHENYTOIN [Suspect]
     Indication: CONVULSION NEONATAL
     Dosage: 10% POWDER, 2 IN 1 D; ORAL
     Route: 048
     Dates: start: 20061028
  5. PHENYTOIN [Suspect]
     Indication: CONVULSION NEONATAL
     Dosage: 10% POWDER, 2 IN 1 D; ORAL
     Route: 048
     Dates: start: 20061109
  6. NI (FAMOTIDINE) [Concomitant]
  7. LANSOPRAZOLE [Concomitant]
  8. GASMOTIN (MOSAPRIDE CITRATE) [Concomitant]
  9. INCREMIN (FERRIC PYROPHOSPHATE, SOLUBLE) [Concomitant]

REACTIONS (2)
  - CONGENITAL HIATUS HERNIA [None]
  - HYPOTHYROIDISM [None]
